FAERS Safety Report 21836083 (Version 2)
Quarter: 2023Q1

REPORT INFORMATION
  Report Type: Report from Study
  Country: US (occurrence: US)
  Receive Date: 20230109
  Receipt Date: 20230110
  Transmission Date: 20230418
  Serious: No
  Sender: FDA-Public Use
  Company Number: US-ABBVIE-4259238

PATIENT
  Age: 55 Year
  Sex: Male

DRUGS (1)
  1. HUMIRA [Suspect]
     Active Substance: ADALIMUMAB
     Indication: Hidradenitis
     Route: 058
     Dates: start: 20220824

REACTIONS (4)
  - Mobility decreased [Unknown]
  - Hidradenitis [Unknown]
  - Illness [Unknown]
  - COVID-19 [Unknown]

NARRATIVE: CASE EVENT DATE: 20221001
